FAERS Safety Report 15771637 (Version 4)
Quarter: 2022Q1

REPORT INFORMATION
  Report Type: Report from Study
  Country: US (occurrence: US)
  Receive Date: 20181228
  Receipt Date: 20220217
  Transmission Date: 20220423
  Serious: Yes (Other)
  Sender: FDA-Public Use
  Company Number: PHEH2018US054645

PATIENT
  Sex: Female

DRUGS (1)
  1. COSENTYX [Suspect]
     Active Substance: SECUKINUMAB
     Indication: Psoriasis
     Dosage: 300 MG, QMO
     Route: 058

REACTIONS (8)
  - Psoriatic arthropathy [Unknown]
  - Back pain [Unknown]
  - Joint swelling [Unknown]
  - Injection site erythema [Unknown]
  - Injection site swelling [Unknown]
  - Musculoskeletal stiffness [Unknown]
  - Psoriasis [Unknown]
  - Therapeutic response shortened [Unknown]
